FAERS Safety Report 18792870 (Version 1)
Quarter: 2021Q1

REPORT INFORMATION
  Report Type: Report from Study
  Country: ES (occurrence: ES)
  Receive Date: 20210127
  Receipt Date: 20210127
  Transmission Date: 20210419
  Serious: Yes (Other)
  Sender: FDA-Public Use
  Company Number: ES-TEVA-2021-ES-1872090

PATIENT
  Age: 42 Year
  Sex: Female

DRUGS (4)
  1. CEFUROXIME. [Concomitant]
     Active Substance: CEFUROXIME
     Indication: DRUG PROVOCATION TEST
     Route: 048
  2. CEFADROXIL. [Suspect]
     Active Substance: CEFADROXIL
     Indication: DRUG PROVOCATION TEST
     Route: 048
  3. AMOXICILLIN. [Suspect]
     Active Substance: AMOXICILLIN
     Indication: ANTIBIOTIC THERAPY
     Route: 065
  4. PENICILLIN V [Concomitant]
     Active Substance: PENICILLIN V
     Indication: DRUG PROVOCATION TEST
     Route: 048

REACTIONS (4)
  - Urticaria [Unknown]
  - Anaphylactic reaction [Recovered/Resolved]
  - Pruritus [Unknown]
  - Therapeutic product cross-reactivity [Unknown]
